FAERS Safety Report 7971809-2 (Version None)
Quarter: 2011Q4

REPORT INFORMATION
  Report Type: 
  Country: None (occurrence: None)
  Receive Date: 20111212
  Receipt Date: 20111205
  Transmission Date: 20120403
  Serious: Yes (Other)
  Sender: FDA-Public Use
  Company Number: US-SANOFI-AVENTIS-2011SA080259

PATIENT

DRUGS (1)
  1. LANTUS [Suspect]
     Dosage: DOSE:30 UNIT(S)
     Route: 065

REACTIONS (1)
  - SUICIDE ATTEMPT [None]
